FAERS Safety Report 21212734 (Version 1)
Quarter: 2022Q3

REPORT INFORMATION
  Report Type: Spontaneous
  Country: US (occurrence: None)
  Receive Date: 20220813
  Receipt Date: 20220813
  Transmission Date: 20221026
  Serious: Yes (Hospitalization)
  Sender: FDA-Public Use
  Company Number: None

PATIENT
  Age: 76 Year
  Sex: Male
  Weight: 96.7 kg

DRUGS (1)
  1. CISPLATIN [Suspect]
     Active Substance: CISPLATIN
     Dates: end: 20200323

REACTIONS (4)
  - Otorrhoea [None]
  - Impaired healing [None]
  - Mastoiditis [None]
  - Eustachian tube stenosis [None]

NARRATIVE: CASE EVENT DATE: 20220711
